FAERS Safety Report 18780231 (Version 1)
Quarter: 2021Q1

REPORT INFORMATION
  Report Type: Spontaneous
  Country: US (occurrence: US)
  Receive Date: 20210123
  Receipt Date: 20210123
  Transmission Date: 20210419
  Serious: Yes (Hospitalization)
  Sender: FDA-Public Use
  Company Number: None

PATIENT
  Age: 71 Year
  Sex: Female

DRUGS (2)
  1. CASIRIVIMAB. [Suspect]
     Active Substance: CASIRIVIMAB
     Indication: COVID-19
     Dosage: ?          OTHER FREQUENCY:ONCE AT 250 ML/HR;?
     Route: 017
     Dates: start: 20210119, end: 20210119
  2. IMDEVIMAB. [Suspect]
     Active Substance: IMDEVIMAB
     Dosage: ?          OTHER FREQUENCY:ONCE AT 250 ML/HR;?
     Route: 017
     Dates: start: 20210119, end: 20210119

REACTIONS (1)
  - Hospitalisation [None]

NARRATIVE: CASE EVENT DATE: 20210119
